FAERS Safety Report 19835236 (Version 2)
Quarter: 2021Q3

REPORT INFORMATION
  Report Type: Report from Study
  Country: None (occurrence: US)
  Receive Date: 20210915
  Receipt Date: 20210916
  Transmission Date: 20211014
  Serious: Yes (Disabling, Other)
  Sender: FDA-Public Use
  Company Number: US-ABBVIE-21K-163-4059769-00

PATIENT
  Sex: Female
  Weight: 62.2 kg

DRUGS (3)
  1. HUMIRA [Suspect]
     Active Substance: ADALIMUMAB
     Route: 058
     Dates: start: 2013, end: 201706
  2. HUMIRA [Suspect]
     Active Substance: ADALIMUMAB
     Indication: RHEUMATOID ARTHRITIS
     Dosage: DAY 1
     Route: 058
     Dates: start: 2010, end: 2010
  3. HUMIRA [Suspect]
     Active Substance: ADALIMUMAB
     Dosage: DAY 15
     Route: 058

REACTIONS (14)
  - Shoulder operation [Unknown]
  - Peroneal nerve palsy [Unknown]
  - Diarrhoea [Unknown]
  - Sciatic nerve injury [Not Recovered/Not Resolved]
  - Contusion [Unknown]
  - Knee arthroplasty [Unknown]
  - Femur fracture [Recovered/Resolved]
  - Gait disturbance [Unknown]
  - Illness [Unknown]
  - Pain [Unknown]
  - Osteonecrosis [Recovered/Resolved]
  - Amnesia [Not Recovered/Not Resolved]
  - Enteritis [Unknown]
  - Fall [Recovered/Resolved]

NARRATIVE: CASE EVENT DATE: 2010
